FAERS Safety Report 5737839-6 (Version None)
Quarter: 2008Q2

REPORT INFORMATION
  Report Type: 
  Country: None (occurrence: None)
  Receive Date: 20080514
  Receipt Date: 20080506
  Transmission Date: 20081010
  Serious: Yes (Other)
  Sender: FDA-Public Use
  Company Number: AU-MERCK-0805AUS00097

PATIENT
  Age: 48 Year
  Sex: Male

DRUGS (11)
  1. CANCIDAS [Suspect]
     Indication: CANDIDIASIS
     Route: 065
     Dates: start: 20070201
  2. CANCIDAS [Suspect]
     Route: 065
  3. CYCLOSPORINE [Concomitant]
     Indication: IMMUNOSUPPRESSION
     Route: 065
     Dates: start: 20070201
  4. METHYLPREDNISOLONE [Concomitant]
     Indication: IMMUNOSUPPRESSION
     Route: 065
     Dates: start: 20070201, end: 20070301
  5. METHYLPREDNISOLONE [Concomitant]
     Route: 065
     Dates: start: 20070301
  6. AZATHIOPRINE [Concomitant]
     Indication: IMMUNOSUPPRESSION
     Route: 065
     Dates: start: 20070201
  7. [THERAPY UNSPECIFIED] [Concomitant]
     Indication: OPPORTUNISTIC INFECTION PROPHYLAXIS
     Route: 065
     Dates: start: 20070201
  8. [THERAPY UNSPECIFIED] [Concomitant]
     Route: 065
     Dates: start: 20070201
  9. [THERAPY UNSPECIFIED] [Concomitant]
     Route: 065
     Dates: start: 20070201
  10. FLUCONAZOLE [Concomitant]
     Indication: CANDIDIASIS
     Route: 065
  11. FLUCONAZOLE [Concomitant]
     Route: 065

REACTIONS (1)
  - MENINGITIS CANDIDA [None]
